FAERS Safety Report 25888086 (Version 1)
Quarter: 2025Q4

REPORT INFORMATION
  Report Type: Spontaneous
  Country: CA (occurrence: CA)
  Receive Date: 20251007
  Receipt Date: 20251007
  Transmission Date: 20260118
  Serious: Yes (Hospitalization)
  Sender: ROCHE
  Company Number: CA-ROCHE-10000398911

PATIENT
  Age: 37 Year
  Sex: Male

DRUGS (3)
  1. AVASTIN [Suspect]
     Active Substance: BEVACIZUMAB
     Indication: Diabetic retinal oedema
     Route: 065
     Dates: start: 20240101, end: 20250301
  2. VABYSMO [Concomitant]
     Active Substance: FARICIMAB-SVOA
     Dates: start: 20250813
  3. EYLEA [Concomitant]
     Active Substance: AFLIBERCEPT
     Dates: start: 202408

REACTIONS (2)
  - Off label use [Unknown]
  - Eye inflammation [Unknown]
